FAERS Safety Report 23609877 (Version 1)
Quarter: 2024Q1

REPORT INFORMATION
  Report Type: Spontaneous
  Country: AU (occurrence: AU)
  Receive Date: 20240308
  Receipt Date: 20240308
  Transmission Date: 20240410
  Serious: Yes (Other)
  Sender: FDA-Public Use
  Company Number: AU-MYLANLABS-2024M1020633

PATIENT
  Age: 41 Year
  Sex: Female

DRUGS (8)
  1. MYCOPHENOLATE MOFETIL [Suspect]
     Active Substance: MYCOPHENOLATE MOFETIL
     Indication: Pemphigus
     Dosage: 1 GRAM, BID
     Route: 065
     Dates: start: 202102, end: 202111
  2. MYCOPHENOLATE MOFETIL [Suspect]
     Active Substance: MYCOPHENOLATE MOFETIL
     Dosage: UNK, (THERAPY CONTINUED AND SUBSEQUENTLY STOPPED)
     Route: 065
     Dates: start: 202102, end: 202111
  3. PREDNISONE [Suspect]
     Active Substance: PREDNISONE
     Indication: Pemphigus
     Dosage: 50 MILLIGRAM, QD,(1 MG/KG/DAY) WITH SUBSEQUENT WEANING
     Route: 065
     Dates: start: 202002
  4. PREDNISONE [Suspect]
     Active Substance: PREDNISONE
     Dosage: 20 MILLIGRAM, QD
     Route: 065
     Dates: start: 202102
  5. PREDNISONE [Suspect]
     Active Substance: PREDNISONE
     Dosage: 2 MILLIGRAM, QD
     Route: 065
     Dates: start: 202106
  6. PREDNISONE [Suspect]
     Active Substance: PREDNISONE
     Dosage: 7 MILLIGRAM, QD
     Route: 065
     Dates: start: 2021
  7. RITUXIMAB [Suspect]
     Active Substance: RITUXIMAB
     Indication: Pemphigus
     Dosage: 1000 MILLIGRAM (FIRST DOSE; INFUSION)
     Route: 065
     Dates: start: 20220207
  8. RITUXIMAB [Suspect]
     Active Substance: RITUXIMAB
     Dosage: 1000 MILLIGRAM (SECOND DOSE; INFUSION)
     Route: 065
     Dates: start: 20220221

REACTIONS (3)
  - COVID-19 [Recovered/Resolved]
  - Drug ineffective for unapproved indication [Unknown]
  - Off label use [Unknown]

NARRATIVE: CASE EVENT DATE: 20210601
